FAERS Safety Report 17984510 (Version 1)
Quarter: 2020Q3

REPORT INFORMATION
  Report Type: Spontaneous
  Country: US (occurrence: US)
  Receive Date: 20200706
  Receipt Date: 20200706
  Transmission Date: 20201103
  Serious: Yes (Hospitalization)
  Sender: FDA-Public Use
  Company Number: US-MYLANLABS-2020M1060686

PATIENT
  Age: 80 Year
  Sex: Female

DRUGS (2)
  1. PREDNISOLONE. [Suspect]
     Active Substance: PREDNISOLONE
     Indication: CYSTOID MACULAR OEDEMA
     Dosage: UNK, QIDIN BOTH EYES; RE?STARTED AT WEEK 6
     Route: 061
  2. NEPAFENAC [Suspect]
     Active Substance: NEPAFENAC
     Indication: CYSTOID MACULAR OEDEMA
     Dosage: UNK, QID IN BOTH EYES
     Route: 061

REACTIONS (3)
  - Streptococcal infection [Recovered/Resolved]
  - Infectious crystalline keratopathy [Recovered/Resolved]
  - Corneal scar [Unknown]
